FAERS Safety Report 10505613 (Version 4)
Quarter: 2014Q4

REPORT INFORMATION
  Report Type: Spontaneous
  Country: US (occurrence: US)
  Receive Date: 20141008
  Receipt Date: 20141211
  Transmission Date: 20150528
  Serious: Yes (Hospitalization, Other)
  Sender: FDA-Public Use
  Company Number: US-PFIZER INC-2014275170

PATIENT
  Age: 55 Year
  Sex: Female

DRUGS (4)
  1. PROTONIX [Suspect]
     Active Substance: PANTOPRAZOLE SODIUM
     Indication: GASTROOESOPHAGEAL REFLUX DISEASE
     Dosage: TWICE DAILY BEFORE MEALS
  2. VISTARIL [Suspect]
     Active Substance: HYDROXYZINE PAMOATE
     Dosage: UNK, DAILY
  3. GLYNASE [Suspect]
     Active Substance: GLYBURIDE
     Dosage: UNK, DAILY
  4. RANITIDINE [Concomitant]
     Active Substance: RANITIDINE\RANITIDINE HYDROCHLORIDE
     Dosage: UNK

REACTIONS (10)
  - Lung disorder [Unknown]
  - Arnold-Chiari malformation [Unknown]
  - Condition aggravated [Unknown]
  - Cough [Not Recovered/Not Resolved]
  - Asthma [Unknown]
  - Pneumonia [Unknown]
  - Pulmonary mass [Unknown]
  - Throat irritation [Unknown]
  - Pineal gland cyst [Unknown]
  - Weight increased [Unknown]

NARRATIVE: CASE EVENT DATE: 2014
